FAERS Safety Report 14508963 (Version 1)
Quarter: 2018Q1

REPORT INFORMATION
  Report Type: Report from Study
  Country: US (occurrence: US)
  Receive Date: 20180209
  Receipt Date: 20180209
  Transmission Date: 20180509
  Serious: Yes (Death)
  Sender: FDA-Public Use
  Company Number: US-UCBSA-2018004289

PATIENT
  Sex: Female

DRUGS (1)
  1. LACOSAMIDE. [Suspect]
     Active Substance: LACOSAMIDE
     Indication: EPILEPSY
     Dosage: UNK

REACTIONS (3)
  - Hyponatraemia [Fatal]
  - Sepsis [Fatal]
  - Non-small cell lung cancer [Fatal]
